FAERS Safety Report 21474648 (Version 1)
Quarter: 2022Q4

REPORT INFORMATION
  Report Type: Spontaneous
  Country: US (occurrence: None)
  Receive Date: 20221017
  Receipt Date: 20221017
  Transmission Date: 20230113
  Serious: Yes (Death)
  Sender: FDA-Public Use
  Company Number: None

PATIENT
  Age: 62 Year
  Sex: Female

DRUGS (2)
  1. AMBRISENTAN [Suspect]
     Active Substance: AMBRISENTAN
     Indication: Pulmonary hypertension
     Dosage: FREQUENCY : DAILY;?
     Route: 048
     Dates: start: 20160202, end: 20221015
  2. SILDENAFIL [Suspect]
     Active Substance: SILDENAFIL

REACTIONS (5)
  - Umbilical hernia [None]
  - Dyspnoea [None]
  - Localised oedema [None]
  - Oedema peripheral [None]
  - Right ventricular failure [None]

NARRATIVE: CASE EVENT DATE: 20221015
